FAERS Safety Report 25186517 (Version 1)
Quarter: 2025Q2

REPORT INFORMATION
  Report Type: Spontaneous
  Country: US (occurrence: US)
  Receive Date: 20250411
  Receipt Date: 20250411
  Transmission Date: 20250716
  Serious: Yes (Life-Threatening, Hospitalization, Other)
  Sender: DENTSPLY
  Company Number: US-DENTSPLY-2025SCDP000101

PATIENT
  Age: 15 Year
  Sex: Male

DRUGS (3)
  1. LIDOCAINE [Suspect]
     Active Substance: LIDOCAINE
     Indication: Pain
  2. KETAMINE [Concomitant]
     Active Substance: KETAMINE
     Indication: Pain
  3. MEXILETINE [Concomitant]
     Active Substance: MEXILETINE
     Indication: Pain
     Route: 048

REACTIONS (5)
  - Toxicity to various agents [Unknown]
  - Autonomic nervous system imbalance [Unknown]
  - Mental status changes [Unknown]
  - Hypertonia [Unknown]
  - Cardiogenic shock [Unknown]
